FAERS Safety Report 8923234 (Version 2)
Quarter: 2013Q2

REPORT INFORMATION
  Report Type: Spontaneous
  Country: US (occurrence: US)
  Receive Date: 20121124
  Receipt Date: 20130606
  Transmission Date: 20140414
  Serious: Yes (Other)
  Sender: FDA-Public Use
  Company Number: US-BAYER-2012-121983

PATIENT
  Age: 83 Year
  Sex: Female
  Weight: 57.14 kg

DRUGS (15)
  1. BAYER ASPIRIN REGIMEN ADULT LOW STRENGTH [Suspect]
     Indication: POSTOPERATIVE CARE
     Dosage: 1 DF, QD
     Dates: start: 20111001
  2. PLAVIX [Suspect]
     Indication: STENT PLACEMENT
     Dosage: 75 MG, QD
     Route: 048
  3. SINGULAIR [Concomitant]
     Indication: ASTHMA
     Dosage: UNK UNK, QD
     Dates: start: 1995
  4. ADVAIR [Concomitant]
     Indication: ASTHMA
     Dosage: 1 INHALATION  QD
     Route: 045
     Dates: start: 1995
  5. NASONEX [Concomitant]
     Dosage: 2 SPRAY TWICE DAILY
  6. METOPROLOL TARTRATE [Concomitant]
     Dosage: UNK UNK, BID
  7. BENICAR [Concomitant]
     Dosage: UNK UNK, QD
  8. NIASPAN [Concomitant]
     Dosage: 100 MG, QD
  9. CENTRUM SILVER [Concomitant]
     Dosage: QD (WOMEN^S ULTRA)
  10. CITRACAL PLUS [Concomitant]
     Dosage: 1 DF, BID
  11. VITAMIN E [Concomitant]
     Dosage: UNK UNK, QD
  12. VITAMIN B12 (CYANOCOBALAMIN AND ANALOGUES) [Concomitant]
     Dosage: UNK UNK, QD
  13. BIOTIN [Concomitant]
     Dosage: UNK UNK, QD
  14. FISH OIL [Concomitant]
     Dosage: ONE TABLE SPOON ONCE DAILY
  15. VITAMIN C WITH ROSE HIPS [Concomitant]
     Dosage: UNK UNK, QD

REACTIONS (3)
  - Epistaxis [Recovered/Resolved]
  - Epistaxis [Recovered/Resolved]
  - Epistaxis [Recovered/Resolved]
